FAERS Safety Report 8847260 (Version 2)
Quarter: 2014Q2

REPORT INFORMATION
  Report Type: Report from Study
  Country: AU (occurrence: AU)
  Receive Date: 20121018
  Receipt Date: 20140530
  Transmission Date: 20141212
  Serious: Yes (Death, Hospitalization, Other)
  Sender: FDA-Public Use
  Company Number: AU-ROCHE-1071373

PATIENT
  Age: 74 Year
  Sex: Female

DRUGS (10)
  1. METHOXY POLYETHYLENE GLYCOL-EPOETIN BETA [Suspect]
     Indication: NEPHROGENIC ANAEMIA
     Route: 058
  2. METHOXY POLYETHYLENE GLYCOL-EPOETIN BETA [Suspect]
     Route: 058
     Dates: start: 20111208
  3. METHOXY POLYETHYLENE GLYCOL-EPOETIN BETA [Suspect]
     Route: 058
     Dates: start: 20120521
  4. SPIRIVA [Concomitant]
  5. SERETIDE [Concomitant]
  6. WARFARIN [Concomitant]
  7. CALCITAB [Concomitant]
  8. DIGOXIN [Concomitant]
  9. FRUSEMIDE [Concomitant]
  10. COLOXYL + SENNA [Concomitant]

REACTIONS (8)
  - Cardiac arrest [Fatal]
  - Atrial fibrillation [Unknown]
  - Renal failure chronic [Unknown]
  - Cellulitis [Unknown]
  - Pulmonary hypertension [Unknown]
  - Acute pulmonary oedema [Unknown]
  - Hypercalcaemia [Unknown]
  - Metabolic acidosis [Unknown]
